FAERS Safety Report 5220720-9 (Version None)
Quarter: 2007Q1

REPORT INFORMATION
  Report Type: 
  Country: None (occurrence: None)
  Receive Date: 20070125
  Receipt Date: 20070125
  Transmission Date: 20070707
  Serious: Yes (Hospitalization)
  Sender: FDA-Public Use
  Company Number: None

PATIENT
  Sex: Female
  Weight: 61.3 kg

DRUGS (12)
  1. TEMOZOLOMIDE [Suspect]
     Dosage: 2625 MG
  2. BACTRIM DS [Concomitant]
  3. BISOPROLOL 2.5MG WITH HCTZ 6.25MG [Concomitant]
  4. DEXAMETHASONE [Concomitant]
  5. DILANTIN [Concomitant]
  6. KEPPRA [Concomitant]
  7. KYTRIL [Concomitant]
  8. MEGACE [Concomitant]
  9. PROTONIX [Concomitant]
  10. REPAGLINIDE [Concomitant]
  11. ROSIGLITAZONE [Concomitant]
  12. XOPENEX [Concomitant]

REACTIONS (5)
  - ASTHENIA [None]
  - ATELECTASIS [None]
  - DIZZINESS [None]
  - DRUG TOXICITY [None]
  - MUSCULAR WEAKNESS [None]
